FAERS Safety Report 6711067-X (Version None)
Quarter: 2010Q2

REPORT INFORMATION
  Report Type: 
  Country: None (occurrence: None)
  Receive Date: 20100505
  Receipt Date: 20090629
  Transmission Date: 20101027
  Serious: No
  Sender: FDA-Public Use
  Company Number: US-KINGPHARMUSA00001-K200900769

PATIENT
  Sex: Female
  Weight: 75.737 kg

DRUGS (9)
  1. AVINZA [Suspect]
     Indication: BACK PAIN
     Dosage: 60 MG, QD
     Route: 048
     Dates: start: 20080101, end: 20090601
  2. AVINZA [Suspect]
     Indication: SCOLIOSIS
     Dosage: UNK
     Route: 048
     Dates: start: 20060101, end: 20080101
  3. AVINZA [Suspect]
     Indication: FIBROMYALGIA
  4. BACLOFEN [Concomitant]
     Indication: MUSCLE RELAXANT THERAPY
     Dosage: UNK
     Route: 048
  5. DIAZEPAM [Concomitant]
     Indication: INSOMNIA
     Dosage: UNK
     Route: 048
  6. ZOCOR [Concomitant]
     Indication: BLOOD CHOLESTEROL INCREASED
     Dosage: UNK
     Route: 048
  7. PAXIL [Concomitant]
     Indication: FIBROMYALGIA
     Dosage: UNK
     Route: 048
  8. PERCOCET [Concomitant]
     Indication: BREAKTHROUGH PAIN
     Dosage: UNK
     Route: 048
  9. VICODIN [Concomitant]
     Indication: PAIN
     Dosage: UNK
     Route: 048

REACTIONS (5)
  - DRUG DIVERSION [None]
  - MALAISE [None]
  - PARAESTHESIA [None]
  - SINUS HEADACHE [None]
  - TEMPERATURE INTOLERANCE [None]
